FAERS Safety Report 16662275 (Version 2)
Quarter: 2020Q1

REPORT INFORMATION
  Report Type: Report from Study
  Country: US (occurrence: US)
  Receive Date: 20190802
  Receipt Date: 20200129
  Transmission Date: 20200409
  Serious: No
  Sender: FDA-Public Use
  Company Number: US-EXELIXIS-CABO-18017964

PATIENT
  Age: 73 Year
  Sex: Male

DRUGS (12)
  1. CABOMETYX [Suspect]
     Active Substance: CABOZANTINIB S-MALATE
     Indication: RENAL CANCER
     Dosage: 60 MG, QD
     Route: 048
     Dates: start: 20181205, end: 201812
  2. CABOMETYX [Suspect]
     Active Substance: CABOZANTINIB S-MALATE
     Dosage: 20 MG, QD
     Route: 048
  3. TRIAMCINOLONE [Concomitant]
     Active Substance: TRIAMCINOLONE
  4. ALLOPURINOL. [Concomitant]
     Active Substance: ALLOPURINOL
  5. OPDIVO [Concomitant]
     Active Substance: NIVOLUMAB
  6. ATORVASTATIN [Concomitant]
     Active Substance: ATORVASTATIN
  7. ATENOLOL. [Concomitant]
     Active Substance: ATENOLOL
  8. XGEVA [Concomitant]
     Active Substance: DENOSUMAB
  9. LYRICA [Concomitant]
     Active Substance: PREGABALIN
  10. SYMBICORT [Concomitant]
     Active Substance: BUDESONIDE\FORMOTEROL FUMARATE DIHYDRATE
  11. TAMSULOSIN [Concomitant]
     Active Substance: TAMSULOSIN
  12. METFORMIN [Concomitant]
     Active Substance: METFORMIN HYDROCHLORIDE

REACTIONS (5)
  - Aphonia [Unknown]
  - Skin ulcer [Unknown]
  - Diarrhoea [Not Recovered/Not Resolved]
  - Cognitive disorder [Unknown]
  - Taste disorder [Unknown]

NARRATIVE: CASE EVENT DATE: 201812
